FAERS Safety Report 7017702-3 (Version None)
Quarter: 2010Q3

REPORT INFORMATION
  Report Type: 
  Country: None (occurrence: None)
  Receive Date: 20100928
  Receipt Date: 20100923
  Transmission Date: 20110219
  Serious: Yes (Death, Hospitalization)
  Sender: FDA-Public Use
  Company Number: BE-CELGENEUS-013-C5013-10051850

PATIENT
  Sex: Male
  Weight: 120 kg

DRUGS (5)
  1. CC-5013 [Suspect]
     Indication: COLORECTAL CANCER
     Route: 048
     Dates: start: 20100507
  2. CC-5013 [Suspect]
     Route: 048
     Dates: start: 20100409
  3. CETUXIMAB [Suspect]
     Indication: COLORECTAL CANCER
     Route: 065
     Dates: start: 20100507, end: 20100521
  4. CETUXIMAB [Suspect]
     Route: 065
     Dates: start: 20100409
  5. CETUXIMAB [Suspect]
     Route: 065

REACTIONS (4)
  - COLORECTAL CANCER [None]
  - DYSPNOEA [None]
  - HYPERBILIRUBINAEMIA [None]
  - OEDEMA [None]
